FAERS Safety Report 22280107 (Version 4)
Quarter: 2023Q2

REPORT INFORMATION
  Report Type: Spontaneous
  Country: US (occurrence: US)
  Receive Date: 20230503
  Receipt Date: 20230613
  Transmission Date: 20230722
  Serious: No
  Sender: FDA-Public Use
  Company Number: US-PFIZER INC-202300172168

PATIENT
  Age: 92 Year
  Sex: Male

DRUGS (3)
  1. VYNDAMAX [Suspect]
     Active Substance: TAFAMIDIS
     Indication: Cardiac amyloidosis
     Dosage: 61 MG
  2. LASIX [Concomitant]
     Active Substance: FUROSEMIDE
     Indication: Cardiac failure
     Dosage: 3X/WEEK (MONDAY, WEDNESDAY AND FRIDAY)
  3. LASIX [Concomitant]
     Active Substance: FUROSEMIDE
     Indication: Oedema
     Dosage: UNK, WEEKLY (I AM TAKING MAYBE ONCE A WEEK OR ONCE EVERY 8 DAYS)

REACTIONS (3)
  - Dizziness [Unknown]
  - Carpal tunnel syndrome [Not Recovered/Not Resolved]
  - Hypoacusis [Unknown]
